FAERS Safety Report 15992807 (Version 1)
Quarter: 2019Q1

REPORT INFORMATION
  Report Type: Spontaneous
  Country: FR (occurrence: FR)
  Receive Date: 20190221
  Receipt Date: 20190221
  Transmission Date: 20190418
  Serious: Yes (Death, Hospitalization)
  Sender: FDA-Public Use
  Company Number: FR-TEVA-2019-FR-1014091

PATIENT
  Age: 80 Year
  Sex: Male
  Weight: 84 kg

DRUGS (16)
  1. SERESTA 10 MG, COMPRIME [Interacting]
     Active Substance: OXAZEPAM
     Indication: ANXIETY
     Dosage: 20 MILLIGRAM DAILY;
     Route: 048
  2. SKENAN [Interacting]
     Active Substance: MORPHINE SULFATE
     Indication: PAIN
     Dosage: 50 MILLIGRAM DAILY; CAPSULE EXTENDED-RELEASE MICROGRANULES
     Route: 048
     Dates: end: 20181016
  3. ACUPAN [Interacting]
     Active Substance: NEFOPAM HYDROCHLORIDE
     Indication: PAIN
     Dosage: 60 MILLIGRAM DAILY;
     Route: 048
     Dates: end: 20181015
  4. TARDYFERON 80 MG, COMPRIME ENROBE [Concomitant]
     Active Substance: FERROUS SULFATE
     Indication: ANAEMIA
     Dosage: 1 DOSAGE FORMS DAILY;
     Route: 048
  5. PARACETAMOL [Concomitant]
     Active Substance: ACETAMINOPHEN
     Indication: PAIN
     Dosage: 4 GRAM DAILY;
     Route: 048
  6. SERETIDE [Concomitant]
     Active Substance: FLUTICASONE PROPIONATE\SALMETEROL XINAFOATE
     Indication: ASTHMA
     Dosage: 2 DOSAGE FORMS DAILY;
     Route: 055
  7. BACTRIM [Concomitant]
     Active Substance: SULFAMETHOXAZOLE\TRIMETHOPRIM
     Indication: INFECTION
     Route: 048
  8. CYMBALTA [Interacting]
     Active Substance: DULOXETINE HYDROCHLORIDE
     Indication: ANXIETY
     Dosage: 1 DOSAGE FORMS DAILY;
     Route: 048
  9. ACTISKENAN 10 MG, GELULE [Interacting]
     Active Substance: MORPHINE SULFATE
     Indication: PAIN
     Route: 048
     Dates: end: 20181016
  10. LEDERFOLINE 25 MG, COMPRIME [Concomitant]
     Indication: PROPHYLAXIS
     Route: 048
  11. CLOBEX 500 MICROGRAMMES/G, EMULSION POUR APPLICATION CUTAN?E [Concomitant]
     Indication: PSORIASIS
     Dosage: 1 DOSAGE FORMS DAILY; EMULSION FOR SKIN APPLICATION
     Route: 061
  12. ALLOPURINOL. [Concomitant]
     Active Substance: ALLOPURINOL
     Indication: LITHIASIS
     Dosage: 100 MILLIGRAM DAILY;
     Route: 048
  13. UVEDOSE 100 000 UI, SOLUTION BUVABLE EN AMPOULE [Concomitant]
     Active Substance: CHOLECALCIFEROL
     Indication: VITAMIN D DEFICIENCY
     Dosage: ORAL SOLUTION IN AMPULE; 100 000 UI
     Route: 048
  14. SEEBRI BREEZHALER 44 MICROGRAMMES, POUDRE POUR INHALATION EN G?LULE [Interacting]
     Active Substance: GLYCOPYRROLATE
     Indication: CHRONIC OBSTRUCTIVE PULMONARY DISEASE
     Dosage: 1 DOSAGE FORMS DAILY; CAPSULE INHALATION POWDER
     Route: 055
  15. VENTOLINE [Concomitant]
     Active Substance: ALBUTEROL
     Indication: ASTHMA
     Route: 055
  16. MONTELUKAST [Suspect]
     Active Substance: MONTELUKAST SODIUM
     Indication: ASTHMA
     Dosage: 10 MILLIGRAM DAILY;
     Route: 048
     Dates: end: 20181024

REACTIONS (5)
  - Fall [Recovered/Resolved]
  - Drug interaction [Recovered/Resolved]
  - Consciousness fluctuating [Recovered/Resolved]
  - Abnormal behaviour [Recovered/Resolved]
  - Disorientation [Recovered/Resolved]

NARRATIVE: CASE EVENT DATE: 201810
